FAERS Safety Report 24794688 (Version 1)
Quarter: 2024Q4

REPORT INFORMATION
  Report Type: Spontaneous
  Country: FR (occurrence: FR)
  Receive Date: 20241231
  Receipt Date: 20241231
  Transmission Date: 20250114
  Serious: Yes (Other)
  Sender: OTSUKA
  Company Number: None

PATIENT
  Age: 55 Year
  Sex: Male
  Weight: 62 kg

DRUGS (4)
  1. ABILIFY [Suspect]
     Active Substance: ARIPIPRAZOLE
     Indication: Schizoaffective disorder
     Dosage: UNK
     Route: 048
  2. CLOZAPINE [Suspect]
     Active Substance: CLOZAPINE
     Indication: Schizoaffective disorder
     Dosage: UNK
     Route: 048
  3. PAROXETINE [Suspect]
     Active Substance: PAROXETINE
     Indication: Depression
     Dosage: UNK
     Route: 048
  4. ALPRAZOLAM [Suspect]
     Active Substance: ALPRAZOLAM
     Indication: Anxiety
     Dosage: UNK
     Route: 048

REACTIONS (2)
  - Immunodeficiency common variable [Not Recovered/Not Resolved]
  - Product use in unapproved indication [Unknown]
